FAERS Safety Report 13980666 (Version 2)
Quarter: 2017Q3

REPORT INFORMATION
  Report Type: Spontaneous
  Country: US (occurrence: US)
  Receive Date: 20170918
  Receipt Date: 20170929
  Transmission Date: 20171128
  Serious: No
  Sender: FDA-Public Use
  Company Number: US-ASTRAZENECA-2017SE94534

PATIENT
  Sex: Female

DRUGS (1)
  1. FARXIGA [Suspect]
     Active Substance: DAPAGLIFLOZIN PROPANEDIOL
     Route: 048

REACTIONS (8)
  - Myalgia [Recovered/Resolved]
  - Fungal infection [Unknown]
  - Alopecia [Unknown]
  - Protein urine present [Unknown]
  - Weight decreased [Unknown]
  - Renal disorder [Unknown]
  - Arthralgia [Unknown]
  - Decreased appetite [Unknown]
